FAERS Safety Report 22693766 (Version 2)
Quarter: 2023Q4

REPORT INFORMATION
  Report Type: Report from Study
  Country: CA (occurrence: CA)
  Receive Date: 20230711
  Receipt Date: 20231006
  Transmission Date: 20240109
  Serious: No
  Sender: FDA-Public Use
  Company Number: CA-ABBVIE-5320263

PATIENT
  Age: 61 Year
  Sex: Male

DRUGS (12)
  1. PLACEBO [Suspect]
     Active Substance: UNSPECIFIED INGREDIENT
     Indication: Dermatitis atopic
     Route: 048
     Dates: start: 20181220, end: 20190416
  2. UPADACITINIB [Suspect]
     Active Substance: UPADACITINIB
     Indication: Dermatitis atopic
     Route: 048
     Dates: start: 20190417
  3. ATARAX [Concomitant]
     Active Substance: HYDROXYZINE HYDROCHLORIDE
     Indication: Dermatitis atopic
     Dosage: TIME INTERVAL: AS NECESSARY
     Route: 048
     Dates: start: 2013
  4. BIODERM ATODERM [Concomitant]
     Indication: Dry skin prophylaxis
     Dosage: 1 APPLICATION, INTENSIVE BALM
     Route: 061
     Dates: start: 20181104
  5. VITAMIN D [Concomitant]
     Active Substance: VITAMIN D NOS
     Indication: Vitamin D deficiency
     Route: 048
     Dates: start: 2000
  6. BIANCA [Concomitant]
     Indication: Acne
     Dosage: 1 APPLICATION
     Route: 061
     Dates: start: 20190807
  7. ROSUVASTATIN [Concomitant]
     Active Substance: ROSUVASTATIN
     Indication: Blood cholesterol increased
     Route: 048
     Dates: start: 20211209
  8. BENZACLIN [Concomitant]
     Active Substance: BENZOYL PEROXIDE\CLINDAMYCIN PHOSPHATE
     Indication: Acne
     Dosage: 1 APPLICATION
     Route: 061
     Dates: start: 20220210
  9. FINACEA [Concomitant]
     Active Substance: AZELAIC ACID
     Indication: Acne
     Dosage: 1 APPLICATION
     Route: 061
     Dates: start: 20220728
  10. HYDROCORTISONE IN NORITATE [Concomitant]
     Indication: Acne
     Route: 061
     Dates: start: 20220825
  11. AKLIEF [Concomitant]
     Active Substance: TRIFAROTENE
     Indication: Acne
     Route: 061
     Dates: start: 20220929
  12. AMLODIPINE [Concomitant]
     Active Substance: AMLODIPINE BESYLATE
     Indication: Hypertension
     Route: 048
     Dates: start: 20230122

REACTIONS (1)
  - Retinal tear [Not Recovered/Not Resolved]

NARRATIVE: CASE EVENT DATE: 20230613
